FAERS Safety Report 9416618 (Version 1)
Quarter: 2013Q3

REPORT INFORMATION
  Report Type: Spontaneous
  Country: AU (occurrence: None)
  Receive Date: 20130719
  Receipt Date: 20130719
  Transmission Date: 20140515
  Serious: Yes (Death)
  Sender: FDA-Public Use
  Company Number: DSU-2013-03955

PATIENT
  Age: 76 Year
  Sex: Female

DRUGS (6)
  1. OLMETEC (OLMESARTAN MEDOXOMIL) (TABLET) (OLMESARTAN MEDOXOMIL) [Suspect]
     Indication: PRODUCT USED FOR UNKNOWN INDICATION
     Dosage: 20 MG 920 MG QD, PER ORAL
     Route: 048
  2. GLIPIZIDE [Suspect]
     Indication: PRODUCT USED FOR UNKNOWN INDICATION
     Dosage: 20 MG (20 MG QS, PO)
     Route: 048
  3. METFORMIN HYDROCHLORIDE (METFORMIN HYDROCHLORIDE) [Suspect]
     Indication: PRODUCT USED FOR UNKNOWN INDICATION
     Dosage: 2000 MG (1000 MG, QD)
     Route: 048
     Dates: end: 20130319
  4. VERAPAMIL HCL [Suspect]
     Indication: PRODUCT USED FOR UNKNOWN INDICATION
     Dosage: 350 MG (180 MG, BD)
  5. ASPIRIN (ACETYLSALOICULIC ACID) (ACETYLSALICYLIC ACID) [Concomitant]
  6. FERROUS SULFPHATE (FERROUS SULFATE) (TABLET) (FERROUS SULFATE) [Concomitant]

REACTIONS (9)
  - Vomiting [None]
  - Diarrhoea [None]
  - Atrioventricular block first degree [None]
  - Electrocardiogram T wave peaked [None]
  - Renal failure acute [None]
  - Continuous haemodiafiltration [None]
  - Embolic stroke [None]
  - Hypoglycaemia [None]
  - Hyperkalaemia [None]
